FAERS Safety Report 20679382 (Version 1)
Quarter: 2022Q2

REPORT INFORMATION
  Report Type: Spontaneous
  Country: None (occurrence: US)
  Receive Date: 20220406
  Receipt Date: 20220406
  Transmission Date: 20220720
  Serious: No
  Sender: FDA-Public Use
  Company Number: US-Mission Pharmacal Company-2127454

PATIENT
  Age: 64 Year
  Sex: Female

DRUGS (1)
  1. THIOLA EC [Suspect]
     Active Substance: TIOPRONIN
     Indication: Cystinuria
     Route: 048
     Dates: start: 20210217

REACTIONS (8)
  - Malaise [Unknown]
  - Fatigue [Unknown]
  - Chills [Unknown]
  - Arthralgia [Unknown]
  - Headache [Unknown]
  - Vision blurred [Unknown]
  - Ear infection [Recovered/Resolved]
  - Urinary tract infection [Recovered/Resolved]
